FAERS Safety Report 10187271 (Version 1)
Quarter: 2014Q2

REPORT INFORMATION
  Report Type: Spontaneous
  Country: US (occurrence: None)
  Receive Date: 20140521
  Receipt Date: 20140521
  Transmission Date: 20141212
  Serious: Yes (Other)
  Sender: FDA-Public Use
  Company Number: None

PATIENT
  Age: 19 Month
  Sex: Male
  Weight: 12.5 kg

DRUGS (40)
  1. GAMUNEX-C [Suspect]
     Indication: INFECTION PROPHYLAXIS
     Dosage: 1 GRAM/KILOGRAM, ONCE, INTRAVENOUS
     Route: 042
     Dates: start: 20140429, end: 20140503
  2. CEFEPIME 660 MG [Concomitant]
  3. VALGANCICLOVIR 130 MG [Concomitant]
  4. NITROFURANTOIN 25 MG [Concomitant]
  5. ASPIRIN 40MG [Concomitant]
  6. FERROUS SULFATE 101 MG [Concomitant]
  7. MAGNESIUM OXIDE 800 MG [Concomitant]
  8. MYCOPHENOLATE MOFETIL 180 MG [Concomitant]
  9. RANITIDINE 22.5 MG [Concomitant]
  10. SODIUM CHLORIDE 40 MEQ [Concomitant]
  11. TACROLIMUS 1.2 MG [Concomitant]
  12. ACETAMINOPHEN 160 MG [Concomitant]
  13. **DIPHENHYDRAMINE 12.5 MG [Concomitant]
  14. GLYCERIN  1 SUPP [Concomitant]
  15. HEPARIN FLUSH 30 UNITS [Concomitant]
  16. LIDOCAINE TOPICAL 1 APPLICATION [Concomitant]
  17. LOPERAMIDE 2 MG [Concomitant]
  18. MEDLINE SOLUTION 1 BAG [Concomitant]
  19. SIMETHICONE 20 MG [Concomitant]
  20. **DEXTROSE 5% [Concomitant]
  21. CEFEPIME 660 MG [Concomitant]
  22. GANCICLOVIR 33 MG [Concomitant]
  23. VANCOMYCIN 200 MG [Concomitant]
  24. FERROUS SULFATE 101 MG [Concomitant]
  25. MAGNESIUM OXIDE 800 MG [Concomitant]
  26. MYCOPHENOLATE MOFETIL 135 MG [Concomitant]
  27. RANITIDINE 22.5 MG [Concomitant]
  28. SODIUM CHLORIDE 30 MEQ [Concomitant]
  29. TACROLIMUS 0.3 MG [Concomitant]
  30. ACETAMINOPHEN 160 MG [Concomitant]
  31. DIPHENHYDRAMINE 12.5 MG [Concomitant]
  32. HEPARIN FLUSH 30 UNITS [Concomitant]
  33. LOPERAMIDE 1 MG [Concomitant]
  34. MEDLINE SOLUTION [Concomitant]
  35. SIMETHICON 20 MG [Concomitant]
  36. SODIUM CHLORIDE 1 ML [Concomitant]
  37. DEXTROSE 5% [Concomitant]
  38. ACETAMINOPHEN 160 MG [Concomitant]
  39. DEXAMETHASONE 2 MG UNAVAILABLE [Concomitant]
  40. DIPHENHYDRAMINE 12.5 MG [Concomitant]

REACTIONS (1)
  - Haemolytic anaemia [None]
